FAERS Safety Report 13881203 (Version 1)
Quarter: 2017Q3

REPORT INFORMATION
  Report Type: Spontaneous
  Country: US (occurrence: US)
  Receive Date: 20170818
  Receipt Date: 20170818
  Transmission Date: 20171127
  Serious: No
  Sender: FDA-Public Use
  Company Number: US-PFIZER INC-2017354226

PATIENT
  Age: 79 Year
  Sex: Male
  Weight: 107 kg

DRUGS (16)
  1. TIKOSYN [Suspect]
     Active Substance: DOFETILIDE
     Indication: ATRIAL FIBRILLATION
     Dosage: 500 MG, 2X/DAY
  2. ASPIRIN /00002701/ [Concomitant]
     Active Substance: ASPIRIN
     Indication: BLOOD DISORDER
  3. NITROSTAT [Concomitant]
     Active Substance: NITROGLYCERIN
     Indication: ANGINA PECTORIS
     Dosage: 4 MG, AS NEEDED
  4. FUROSEMIDE. [Concomitant]
     Active Substance: FUROSEMIDE
     Indication: OEDEMA
     Dosage: 40 MG, 1X/DAY
  5. IMIPRAMINE [Concomitant]
     Active Substance: IMIPRAMINE
     Indication: OESOPHAGEAL DISORDER
     Dosage: 30 MG, 1X/DAY, 10 MG THREE TABLETS A DAY
  6. SIMVASTATIN. [Concomitant]
     Active Substance: SIMVASTATIN
     Indication: CARDIAC DISORDER
     Dosage: 20 MG, 1X/DAY
     Dates: start: 2011
  7. ASPIRIN /00002701/ [Concomitant]
     Active Substance: ASPIRIN
     Indication: CARDIAC DISORDER
     Dosage: 81 MG, 1X/DAY
     Dates: start: 2011
  8. ATENOLOL. [Concomitant]
     Active Substance: ATENOLOL
     Indication: CARDIAC DISORDER
     Dosage: 12.5 MG, 1X/DAY, HALF 25 MG TABLET
  9. ISOSORBIDE MONONITRATE. [Concomitant]
     Active Substance: ISOSORBIDE MONONITRATE
     Indication: ANGINA PECTORIS
     Dosage: 30 MG, 1X/DAY
  10. OMEPRAZOLE. [Concomitant]
     Active Substance: OMEPRAZOLE
     Indication: DYSPEPSIA
     Dosage: 40 MG, 1X/DAY, 20MG TWO ONCE A DAY
     Dates: start: 2011
  11. AMLODIPINE [Concomitant]
     Active Substance: AMLODIPINE BESYLATE
     Indication: CARDIAC DISORDER
     Dosage: 5 MG, 1X/DAY
     Dates: start: 2011
  12. ELIQUIS [Concomitant]
     Active Substance: APIXABAN
     Indication: COAGULOPATHY
     Dosage: 10 MG, DAILY; TAKE TWO 5 MG TABLET
  13. LEVOTHYROXINE. [Concomitant]
     Active Substance: LEVOTHYROXINE
     Indication: THYROID DISORDER
     Dosage: 0.175 MG, 1X/DAY
  14. POTASSIUM [Concomitant]
     Active Substance: POTASSIUM
     Indication: MUSCLE SPASMS
     Dosage: 20 MEQ, 1X/DAY
  15. IMIPRAMINE [Concomitant]
     Active Substance: IMIPRAMINE
     Indication: ANGINA PECTORIS
  16. OMEPRAZOLE. [Concomitant]
     Active Substance: OMEPRAZOLE
     Indication: GASTROOESOPHAGEAL REFLUX DISEASE

REACTIONS (2)
  - Condition aggravated [Not Recovered/Not Resolved]
  - Arthritis [Not Recovered/Not Resolved]
